FAERS Safety Report 8871985 (Version 1)
Quarter: 2012Q4

REPORT INFORMATION
  Report Type: 
  Country: US (occurrence: US)
  Receive Date: 20121023
  Receipt Date: 20121023
  Transmission Date: 20130627
  Serious: No
  Sender: FDA-Public Use
  Company Number: US-ASTELLAS-2012US003548

PATIENT
  Sex: Female
  Weight: 93 kg

DRUGS (4)
  1. PROGRAF [Suspect]
     Indication: RENAL TRANSPLANT
     Dosage: 7 mg, bid
     Route: 048
     Dates: start: 2010
  2. PROGRAF [Suspect]
     Dosage: 12 mg, tid
     Route: 048
     Dates: start: 201203
  3. PROGRAF [Suspect]
     Dosage: 12 mg, bid
     Route: 048
     Dates: start: 201203
  4. TACROLIMUS [Suspect]
     Indication: RENAL TRANSPLANT
     Dosage: UNK
     Route: 065
     Dates: start: 201203, end: 201204

REACTIONS (5)
  - Inappropriate schedule of drug administration [Unknown]
  - Incorrect route of drug administration [Unknown]
  - Immunosuppressant drug level increased [Recovering/Resolving]
  - Immunosuppressant drug level decreased [Recovered/Resolved]
  - Weight increased [Unknown]
